FAERS Safety Report 13047478 (Version 1)
Quarter: 2016Q4

REPORT INFORMATION
  Report Type: Report from Study
  Country: None (occurrence: BE)
  Receive Date: 20161220
  Receipt Date: 20161220
  Transmission Date: 20170207
  Serious: Yes (Death)
  Sender: FDA-Public Use
  Company Number: BE-ABBVIE-16P-013-1574104-00

PATIENT
  Age: 77 Year
  Sex: Female

DRUGS (13)
  1. ACETYLSALICYLIC ACID  (ASAFLOW) [Concomitant]
     Indication: PRODUCT USED FOR UNKNOWN INDICATION
  2. DOMPERIDON (MOTILIUM) [Concomitant]
     Indication: PRODUCT USED FOR UNKNOWN INDICATION
  3. DUODOPA [Suspect]
     Active Substance: CARBIDOPA\LEVODOPA
     Dosage: AM= 2.5 ML; CD= 1 ML/H DURING 16 HRS; ED= 0.8 ML
     Route: 050
     Dates: start: 20160817
  4. DUODOPA [Suspect]
     Active Substance: CARBIDOPA\LEVODOPA
     Dosage: DOSES CONTINUOUSLY MONITORED AND ADAPTED.
     Route: 050
     Dates: start: 20150410, end: 20160226
  5. RANITIDINE. [Concomitant]
     Active Substance: RANITIDINE
     Indication: PRODUCT USED FOR UNKNOWN INDICATION
  6. CYANOCOBALAMINE, FOLIC ACID, PYRIDOXIN (TRIBVIT) [Concomitant]
     Indication: PRODUCT USED FOR UNKNOWN INDICATION
  7. DUODOPA [Suspect]
     Active Substance: CARBIDOPA\LEVODOPA
     Indication: PARKINSON^S DISEASE
     Dosage: AM=5.5ML; CD=1ML/H FOR 16HRS; ED=0.5ML
     Route: 050
     Dates: start: 20150407, end: 20150410
  8. AMITRIPTYLINE (REDOMEX) [Concomitant]
     Indication: PRODUCT USED FOR UNKNOWN INDICATION
  9. LORAZEPAM (SERENASE) [Concomitant]
     Indication: PRODUCT USED FOR UNKNOWN INDICATION
  10. DUODOPA [Suspect]
     Active Substance: CARBIDOPA\LEVODOPA
     Dosage: AM=2.5ML; CD=1.2ML/H FOR 16HRS; ED=1ML
     Route: 050
     Dates: start: 20160226, end: 20160817
  11. DYNATONIC [Concomitant]
     Indication: PRODUCT USED FOR UNKNOWN INDICATION
  12. PRIMIDONE (MYSOLINE) [Concomitant]
     Indication: PRODUCT USED FOR UNKNOWN INDICATION
  13. PIRACETAM [Concomitant]
     Active Substance: PIRACETAM
     Indication: PRODUCT USED FOR UNKNOWN INDICATION

REACTIONS (5)
  - Dyskinesia [Recovering/Resolving]
  - Keloid scar [Not Recovered/Not Resolved]
  - Sudden death [Fatal]
  - Salivary hypersecretion [Not Recovered/Not Resolved]
  - Stoma site hypergranulation [Recovered/Resolved]

NARRATIVE: CASE EVENT DATE: 20161213
